FAERS Safety Report 18988379 (Version 1)
Quarter: 2021Q1

REPORT INFORMATION
  Report Type: Spontaneous
  Country: US (occurrence: US)
  Receive Date: 20210309
  Receipt Date: 20210309
  Transmission Date: 20210420
  Serious: Yes (Life-Threatening, Other)
  Sender: FDA-Public Use
  Company Number: US-SLATE RUN PHARMACEUTICALS-21US000417

PATIENT

DRUGS (11)
  1. AZITHROMYCIN USP [Suspect]
     Active Substance: AZITHROMYCIN
     Indication: MATERNAL EXPOSURE TIMING UNSPECIFIED
     Route: 064
  2. OXYGEN. [Concomitant]
     Active Substance: OXYGEN
     Dosage: UNK
     Route: 064
  3. REMDESIVIR. [Concomitant]
     Active Substance: REMDESIVIR
     Indication: MATERNAL EXPOSURE TIMING UNSPECIFIED
     Route: 064
  4. MAGNESIUM SULFATE. [Concomitant]
     Active Substance: MAGNESIUM SULFATE
     Indication: MATERNAL EXPOSURE TIMING UNSPECIFIED
     Route: 064
  5. HYDROXYCHLOROQUINE [Concomitant]
     Active Substance: HYDROXYCHLOROQUINE
     Indication: MATERNAL EXPOSURE TIMING UNSPECIFIED
     Route: 064
  6. INSULIN [Concomitant]
     Active Substance: INSULIN NOS
     Dosage: UNK
     Route: 064
  7. ANESTHETICS [Concomitant]
     Active Substance: UNSPECIFIED INGREDIENT
     Indication: MATERNAL EXPOSURE TIMING UNSPECIFIED
     Route: 064
  8. CEFTRIAXONE. [Concomitant]
     Active Substance: CEFTRIAXONE
     Indication: MATERNAL EXPOSURE TIMING UNSPECIFIED
     Route: 064
  9. OXYGEN. [Concomitant]
     Active Substance: OXYGEN
     Indication: MATERNAL EXPOSURE TIMING UNSPECIFIED
     Dosage: 30 LITRE/MIN
     Route: 064
  10. OXYGEN. [Concomitant]
     Active Substance: OXYGEN
     Dosage: 15 LITRE/MIN
     Route: 064
  11. INSULIN [Concomitant]
     Active Substance: INSULIN NOS
     Indication: MATERNAL EXPOSURE TIMING UNSPECIFIED
     Dosage: UNK
     Route: 064

REACTIONS (10)
  - Apgar score low [Recovered/Resolved]
  - Premature baby [Recovered/Resolved]
  - Foetal exposure during pregnancy [Recovered/Resolved]
  - Lymphopenia [Recovered/Resolved]
  - Acidosis [Recovered/Resolved]
  - Neonatal respiratory distress [Recovered/Resolved]
  - Pulmonary oedema neonatal [Recovered/Resolved]
  - Neutropenia neonatal [Recovered/Resolved]
  - Lung opacity [Recovered/Resolved]
  - Leukopenia neonatal [Recovered/Resolved]
